FAERS Safety Report 9432782 (Version 1)
Quarter: 2013Q3

REPORT INFORMATION
  Report Type: Spontaneous
  Country: US (occurrence: US)
  Receive Date: 20130731
  Receipt Date: 20130731
  Transmission Date: 20140515
  Serious: No
  Sender: FDA-Public Use
  Company Number: US-BAYER-2013-085968

PATIENT
  Sex: Female

DRUGS (1)
  1. CIPRO [Suspect]
     Dosage: 500 MG, UNK
     Dates: start: 20130709, end: 20130710

REACTIONS (5)
  - Dizziness [None]
  - Hypoaesthesia oral [None]
  - Hypoaesthesia [None]
  - Hypoaesthesia oral [None]
  - Wrong technique in drug usage process [None]
